FAERS Safety Report 18688061 (Version 1)
Quarter: 2020Q4

REPORT INFORMATION
  Report Type: Spontaneous
  Country: US (occurrence: US)
  Receive Date: 20201231
  Receipt Date: 20201231
  Transmission Date: 20210114
  Serious: Yes (Life-Threatening, Hospitalization, Disabling, Other)
  Sender: FDA-Public Use
  Company Number: US-ACCORD-212702

PATIENT
  Age: 69 Year
  Sex: Female

DRUGS (2)
  1. METOPROLOL. [Concomitant]
     Active Substance: METOPROLOL
  2. HYDROXYCHLOROQUINE [Suspect]
     Active Substance: HYDROXYCHLOROQUINE
     Indication: RHEUMATOID ARTHRITIS

REACTIONS (12)
  - Cardiotoxicity [Recovering/Resolving]
  - Ventricular hypokinesia [Recovering/Resolving]
  - Myopathy toxic [Recovering/Resolving]
  - Cardiac failure [Recovering/Resolving]
  - Dysphagia [Not Recovered/Not Resolved]
  - Ejection fraction decreased [Recovering/Resolving]
  - Cardiomyopathy [Recovering/Resolving]
  - Toxicity to various agents [Unknown]
  - Neuromyopathy [Recovering/Resolving]
  - Peripheral motor neuropathy [Recovering/Resolving]
  - Peripheral sensory neuropathy [Recovering/Resolving]
  - Left ventricular dysfunction [Recovering/Resolving]
